APPROVED DRUG PRODUCT: POTASSIUM CHLORIDE 0.149% IN SODIUM CHLORIDE 0.45% IN PLASTIC CONTAINER
Active Ingredient: POTASSIUM CHLORIDE; SODIUM CHLORIDE
Strength: 149MG/100ML;450MG/100ML
Dosage Form/Route: INJECTABLE;INJECTION
Application: A078446 | Product #001 | TE Code: AP
Applicant: OTSUKA ICU MEDICAL LLC
Approved: Sep 10, 2008 | RLD: No | RS: No | Type: RX